FAERS Safety Report 8990710 (Version 1)
Quarter: 2012Q4

REPORT INFORMATION
  Report Type: Spontaneous
  Country: US (occurrence: None)
  Receive Date: 20121226
  Receipt Date: 20121226
  Transmission Date: 20130627
  Serious: Yes (Hospitalization)
  Sender: FDA-Public Use
  Company Number: None

PATIENT
  Age: 68 Year
  Sex: Male
  Weight: 94.1 kg

DRUGS (1)
  1. RIFAMPIN [Suspect]
     Dosage: 300 MG BID PO
     Route: 048
     Dates: start: 20121130, end: 20121206

REACTIONS (1)
  - Tachycardia [None]
